FAERS Safety Report 17480438 (Version 1)
Quarter: 2020Q1

REPORT INFORMATION
  Report Type: Spontaneous
  Country: US (occurrence: US)
  Receive Date: 20200229
  Receipt Date: 20200229
  Transmission Date: 20200409
  Serious: Yes (Other)
  Sender: FDA-Public Use
  Company Number: US-SAMSUNG BIOEPIS-SB-2020-06788

PATIENT
  Age: 20 Year
  Sex: Female

DRUGS (4)
  1. RENFLEXIS [Suspect]
     Active Substance: INFLIXIMAB-ABDA
     Indication: CROHN^S DISEASE
     Dosage: WEEK 0
     Route: 065
  2. RENFLEXIS [Suspect]
     Active Substance: INFLIXIMAB-ABDA
     Dosage: WEEK 6
     Route: 065
  3. RENFLEXIS [Suspect]
     Active Substance: INFLIXIMAB-ABDA
     Route: 065
  4. RENFLEXIS [Suspect]
     Active Substance: INFLIXIMAB-ABDA
     Dosage: WEEK 2
     Route: 065

REACTIONS (1)
  - Drug-induced liver injury [Recovered/Resolved]
